FAERS Safety Report 5564267-9 (Version None)
Quarter: 2007Q4

REPORT INFORMATION
  Report Type: 
  Country: None (occurrence: None)
  Receive Date: 20071212
  Receipt Date: 20071128
  Transmission Date: 20080405
  Serious: Yes (Other)
  Sender: FDA-Public Use
  Company Number: 2007SP024575

PATIENT
  Age: 56 Year
  Sex: Male

DRUGS (3)
  1. BETAMETHASONE SODIUM PHOSPHATE [Suspect]
     Indication: ULCERATIVE KERATITIS
     Dosage: IO
     Route: 031
     Dates: start: 20030527
  2. CYCLOPHOSPHAMIDE [Suspect]
     Indication: WEGENER'S GRANULOMATOSIS
     Dosage: 100 MG;QD;PO
     Route: 048
     Dates: start: 20030527
  3. PREDNISOLONE [Concomitant]

REACTIONS (1)
  - PANCYTOPENIA [None]
